FAERS Safety Report 18399447 (Version 2)
Quarter: 2020Q4

REPORT INFORMATION
  Report Type: Spontaneous
  Country: US (occurrence: US)
  Receive Date: 20201019
  Receipt Date: 20201211
  Transmission Date: 20210114
  Serious: No
  Sender: FDA-Public Use
  Company Number: US-PFIZER INC-2020401879

PATIENT
  Age: 58 Year
  Sex: Female

DRUGS (1)
  1. LORBRENA [Suspect]
     Active Substance: LORLATINIB
     Indication: LUNG NEOPLASM MALIGNANT
     Dosage: 100 MG, DAILY (QPM (EVERY AFTERNOON OR EVENING))
     Dates: start: 20200916, end: 20201207

REACTIONS (1)
  - Blood cholesterol increased [Unknown]
